FAERS Safety Report 4568682-1 (Version None)
Quarter: 2005Q1

REPORT INFORMATION
  Report Type: 
  Country: None (occurrence: None)
  Receive Date: 20050202
  Receipt Date: 20050119
  Transmission Date: 20050727
  Serious: Yes (Hospitalization, Disabling, Other)
  Sender: FDA-Public Use
  Company Number: CH-MERCK-0501CHE00018

PATIENT
  Age: 74 Year
  Sex: Female
  Weight: 54 kg

DRUGS (5)
  1. ZOCOR [Suspect]
     Indication: HYPERCHOLESTEROLAEMIA
     Route: 048
     Dates: start: 20041001, end: 20041117
  2. CARVEDILOL [Suspect]
     Indication: HYPERTENSION
     Route: 048
  3. ASPIRIN [Concomitant]
     Route: 048
  4. RAMIPRIL [Concomitant]
     Route: 048
  5. PIRETANIDE [Concomitant]
     Route: 048

REACTIONS (4)
  - DIFFICULTY IN WALKING [None]
  - MONOPLEGIA [None]
  - MUSCULAR WEAKNESS [None]
  - RHABDOMYOLYSIS [None]
